FAERS Safety Report 8099884-8 (Version None)
Quarter: 2012Q1

REPORT INFORMATION
  Report Type: 
  Country: None (occurrence: None)
  Receive Date: 20120131
  Receipt Date: 20120123
  Transmission Date: 20120608
  Serious: Yes (Other)
  Sender: FDA-Public Use
  Company Number: US-JNJFOC-20120111520

PATIENT
  Age: 65 Year
  Sex: Female
  Weight: 79.38 kg

DRUGS (3)
  1. AVALIDE [Concomitant]
     Indication: HYPERTENSION
     Dosage: FOR YEARS
     Route: 065
  2. LISTERINE ORIGINAL [Suspect]
     Indication: DENTAL DISORDER PROPHYLAXIS
     Dosage: LESS THAN A HALF CAPFUL, FOR YEARS
     Route: 048
  3. SIMVASTATIN [Concomitant]
     Indication: BLOOD CHOLESTEROL INCREASED
     Dosage: FOR YEARS
     Route: 065

REACTIONS (1)
  - AGEUSIA [None]
